FAERS Safety Report 8532121 (Version 2)
Quarter: 2014Q2

REPORT INFORMATION
  Report Type: Spontaneous
  Country: ES (occurrence: ES)
  Receive Date: 20120426
  Receipt Date: 20140417
  Transmission Date: 20141212
  Serious: Yes (Other)
  Sender: FDA-Public Use
  Company Number: ES-GILEAD-2012-0050843

PATIENT
  Age: 49 Year
  Sex: Female

DRUGS (2)
  1. VIREAD [Suspect]
     Indication: CHRONIC HEPATITIS B
     Dosage: UNK
     Route: 065
     Dates: start: 2011
  2. HEPSERA [Concomitant]
     Indication: TRANSAMINASES INCREASED
     Dosage: UNK
     Route: 065
     Dates: start: 2006, end: 2011

REACTIONS (4)
  - Osteomalacia [Recovered/Resolved]
  - Renal tubular disorder [Recovered/Resolved]
  - Hypophosphataemia [Recovered/Resolved]
  - Drug interaction [Recovered/Resolved]
